FAERS Safety Report 4863390-1 (Version None)
Quarter: 2005Q4

REPORT INFORMATION
  Report Type: 
  Country: None (occurrence: None)
  Receive Date: 20051222
  Receipt Date: 20041118
  Transmission Date: 20060501
  Serious: No
  Sender: FDA-Public Use
  Company Number: US-GLAXOSMITHKLINE-A0534476A

PATIENT
  Age: 85 Year
  Sex: Male

DRUGS (8)
  1. FLONASE [Suspect]
     Dosage: 1SPR TWICE PER DAY
     Route: 045
  2. ALBUTEROL [Concomitant]
  3. ADVAIR DISKUS 250/50 [Concomitant]
  4. ISOSORBIDE [Concomitant]
  5. PLAVIX [Concomitant]
  6. TOPROL-XL [Concomitant]
  7. XOPENEX [Concomitant]
  8. FLONASE [Concomitant]

REACTIONS (4)
  - BLOOD PRESSURE DECREASED [None]
  - NERVOUSNESS [None]
  - PHARMACEUTICAL PRODUCT COMPLAINT [None]
  - TREMOR [None]
